FAERS Safety Report 5325392-0 (Version None)
Quarter: 2007Q2

REPORT INFORMATION
  Report Type: 
  Country: None (occurrence: None)
  Receive Date: 20070509
  Receipt Date: 20070426
  Transmission Date: 20071010
  Serious: Yes (Death)
  Sender: FDA-Public Use
  Company Number: 16398

PATIENT
  Age: 6 Year
  Sex: Female

DRUGS (23)
  1. CARBOPLATIN [Suspect]
     Indication: METASTASES TO LUNG
  2. CARBOPLATIN [Suspect]
     Indication: RHABDOMYOSARCOMA
  3. CARBOPLATIN [Suspect]
     Indication: METASTASES TO LUNG
     Dosage: 500 MG/M2 PER_CYCLE
  4. CARBOPLATIN [Suspect]
     Indication: RHABDOMYOSARCOMA
     Dosage: 500 MG/M2 PER_CYCLE
  5. EPIRUBICIN [Suspect]
     Indication: METASTASES TO LUNG
  6. EPIRUBICIN [Suspect]
     Indication: RHABDOMYOSARCOMA
  7. EPIRUBICIN [Suspect]
     Indication: METASTASES TO LUNG
     Dosage: 150 MG/M2 PER_CYCLE
  8. EPIRUBICIN [Suspect]
     Indication: RHABDOMYOSARCOMA
     Dosage: 150 MG/M2 PER_CYCLE
  9. ETOPOSIDE [Suspect]
     Indication: METASTASES TO LUNG
  10. ETOPOSIDE [Suspect]
     Indication: RHABDOMYOSARCOMA
  11. VINCRISTINE [Suspect]
     Indication: METASTASES TO LUNG
  12. VINCRISTINE [Suspect]
     Indication: RHABDOMYOSARCOMA
  13. VINCRISTINE [Suspect]
     Indication: METASTASES TO LUNG
     Dosage: 1.5 MG/M2 PER_CYCLE
  14. VINCRISTINE [Suspect]
     Indication: RHABDOMYOSARCOMA
     Dosage: 1.5 MG/M2 PER_CYCLE
  15. IFOSFAMIDE [Suspect]
     Indication: METASTASES TO LUNG
  16. IFOSFAMIDE [Suspect]
     Indication: RHABDOMYOSARCOMA
  17. IFOSFAMIDE [Suspect]
     Indication: METASTASES TO LUNG
     Dosage: 9 G/M2
  18. IFOSFAMIDE [Suspect]
     Indication: RHABDOMYOSARCOMA
     Dosage: 9 G/M2
  19. DACTINOMYCIN [Suspect]
     Indication: METASTASES TO LUNG
  20. DACTINOMYCIN [Suspect]
     Indication: RHABDOMYOSARCOMA
  21. AMPHOTERICIN B [Concomitant]
  22. IMIPENEM [Concomitant]
  23. FLUCYTOSINE [Concomitant]

REACTIONS (9)
  - BETA HAEMOLYTIC STREPTOCOCCAL INFECTION [None]
  - BLOOD CULTURE POSITIVE [None]
  - CANDIDA SEROLOGY POSITIVE [None]
  - NO THERAPEUTIC RESPONSE [None]
  - PNEUMONITIS [None]
  - PNEUMOTHORAX [None]
  - RESPIRATORY FAILURE [None]
  - SPUTUM CULTURE POSITIVE [None]
  - STRIDOR [None]
